FAERS Safety Report 21637188 (Version 1)
Quarter: 2022Q4

REPORT INFORMATION
  Report Type: Spontaneous
  Country: DE (occurrence: DE)
  Receive Date: 20221124
  Receipt Date: 20221124
  Transmission Date: 20230113
  Serious: Yes (Other)
  Sender: FDA-Public Use
  Company Number: DE-CADRBFARM-2022309835

PATIENT
  Age: 26 Year
  Sex: Male
  Weight: 63 kg

DRUGS (1)
  1. VENLAFAXINE [Suspect]
     Active Substance: VENLAFAXINE HYDROCHLORIDE
     Indication: Depression
     Dosage: UNK
     Route: 048
     Dates: start: 20190204, end: 20200911

REACTIONS (6)
  - Sexual dysfunction [Recovered/Resolved with Sequelae]
  - Emotional poverty [Recovered/Resolved with Sequelae]
  - Sleep disorder [Recovered/Resolved with Sequelae]
  - Loss of libido [Recovered/Resolved with Sequelae]
  - Hyperhidrosis [Recovered/Resolved with Sequelae]
  - Depressed mood [Recovered/Resolved with Sequelae]

NARRATIVE: CASE EVENT DATE: 20210401
